FAERS Safety Report 5216291-3 (Version None)
Quarter: 2007Q1

REPORT INFORMATION
  Report Type: 
  Country: None (occurrence: None)
  Receive Date: 20070123
  Receipt Date: 20070113
  Transmission Date: 20070707
  Serious: Yes (Other)
  Sender: FDA-Public Use
  Company Number: MX-PFIZER INC-2007004055

PATIENT
  Age: 76 Year
  Sex: Male

DRUGS (1)
  1. ESTRAMUSTINE PHOSPHATE SODIUM CAPSULE [Suspect]
     Indication: PROSTATE CANCER
     Route: 048

REACTIONS (1)
  - VENOUS THROMBOSIS [None]
